FAERS Safety Report 9215965 (Version 1)
Quarter: 2013Q2

REPORT INFORMATION
  Report Type: Spontaneous
  Country: GB (occurrence: None)
  Receive Date: 20130404
  Receipt Date: 20130404
  Transmission Date: 20140414
  Serious: Yes (Life-Threatening, Hospitalization, Other)
  Sender: FDA-Public Use
  Company Number: AUR-APL-2010-00149

PATIENT
  Sex: Female

DRUGS (5)
  1. FLUOXETINE (FLUOXETINE) [Suspect]
     Route: 064
  2. GABAPENTIN (GABAPENTIN) [Suspect]
     Route: 064
  3. MORPHINE SULFATE [Suspect]
     Dosage: 15 (15 MG, AS NECESSARY, TRPL
     Route: 064
  4. TRAMADOL [Suspect]
     Dosage: 400 MG ( 100 MG, EVERY 6 HOURS
     Route: 064
  5. TRIFLUOPERAZINE [Suspect]
     Route: 064

REACTIONS (5)
  - Apnoea [None]
  - Drug withdrawal syndrome [None]
  - Drug withdrawal syndrome neonatal [None]
  - Exposure during pregnancy [None]
  - Caesarean section [None]
